FAERS Safety Report 5775500-2 (Version None)
Quarter: 2008Q2

REPORT INFORMATION
  Report Type: 
  Country: None (occurrence: None)
  Receive Date: 20080601
  Receipt Date: 20080215
  Transmission Date: 20081010
  Serious: No
  Sender: FDA-Public Use
  Company Number: US200711001944

PATIENT
  Age: 66 Year
  Sex: Female
  Weight: 68 kg

DRUGS (24)
  1. BYETTA [Suspect]
     Indication: TYPE 2 DIABETES MELLITUS
     Dosage: SEE IMAGE
     Route: 058
     Dates: start: 20070101, end: 20070101
  2. BYETTA [Suspect]
     Indication: TYPE 2 DIABETES MELLITUS
     Dosage: SEE IMAGE
     Route: 058
     Dates: start: 20071208, end: 20070101
  3. BYETTA [Suspect]
     Indication: TYPE 2 DIABETES MELLITUS
     Dosage: SEE IMAGE
     Route: 058
     Dates: start: 20070801, end: 20071003
  4. BYETTA [Suspect]
     Indication: TYPE 2 DIABETES MELLITUS
     Dosage: SEE IMAGE
     Route: 058
     Dates: start: 20071004, end: 20071101
  5. BYETTA [Suspect]
     Indication: TYPE 2 DIABETES MELLITUS
     Dosage: SEE IMAGE
     Route: 058
     Dates: start: 20071107, end: 20071201
  6. BYETTA [Suspect]
     Indication: TYPE 2 DIABETES MELLITUS
     Dosage: SEE IMAGE
     Route: 058
     Dates: end: 20071201
  7. BYETTA [Suspect]
     Indication: TYPE 2 DIABETES MELLITUS
     Dosage: SEE IMAGE
     Route: 058
     Dates: start: 20080214, end: 20080214
  8. BYETTA [Suspect]
     Indication: TYPE 2 DIABETES MELLITUS
     Dosage: SEE IMAGE
     Route: 058
     Dates: start: 20080215
  9. BYETTA [Suspect]
  10. BYETTA [Suspect]
  11. BYETTA [Suspect]
  12. METFORMIN HCL [Concomitant]
  13. LEVOXYL [Concomitant]
  14. VITAMIN B12 [Concomitant]
  15. FERROUS SULFATE TAB [Concomitant]
  16. VITAMIN D [Concomitant]
  17. GINKO BILOBA (GINKGO BILOBA) [Concomitant]
  18. COENZYME Q10 [Concomitant]
  19. REQUIP [Concomitant]
  20. NEURONTIN /USA/ (GABAPENTIN) [Concomitant]
  21. OXYCODONE HCL [Concomitant]
  22. PAXIL [Concomitant]
  23. FOLIC ACID [Concomitant]
  24. IMODIUM [Concomitant]

REACTIONS (7)
  - HEADACHE [None]
  - INJECTION SITE DISCOLOURATION [None]
  - INJECTION SITE ERYTHEMA [None]
  - INJECTION SITE HAEMORRHAGE [None]
  - INJECTION SITE PAIN [None]
  - INJECTION SITE SWELLING [None]
  - MIGRAINE [None]
